FAERS Safety Report 6004839-0 (Version None)
Quarter: 2008Q4

REPORT INFORMATION
  Report Type: 
  Country: None (occurrence: None)
  Receive Date: 20081216
  Receipt Date: 20081210
  Transmission Date: 20090506
  Serious: Yes (Other)
  Sender: FDA-Public Use
  Company Number: US-AMGEN-US323386

PATIENT
  Age: 65 Year
  Sex: Female

DRUGS (4)
  1. ENBREL [Suspect]
     Indication: RHEUMATOID ARTHRITIS
     Dosage: UNKNOWN
     Route: 065
     Dates: start: 19990101, end: 20030801
  2. LEFLUNOMIDE [Suspect]
     Dosage: UNKNOWN
     Route: 065
  3. MELOXICAM [Concomitant]
     Dosage: UNKNOWN
     Route: 065
  4. OMEPRAZOLE [Concomitant]

REACTIONS (5)
  - ABDOMINAL DISCOMFORT [None]
  - ALVEOLITIS ALLERGIC [None]
  - CONDITION AGGRAVATED [None]
  - PULMONARY GRANULOMA [None]
  - RHEUMATOID ARTHRITIS [None]
